FAERS Safety Report 12448304 (Version 2)
Quarter: 2016Q3

REPORT INFORMATION
  Report Type: Spontaneous
  Country: PK (occurrence: PK)
  Receive Date: 20160608
  Receipt Date: 20160805
  Transmission Date: 20161109
  Serious: Yes (Death)
  Sender: FDA-Public Use
  Company Number: PK-SA-2016SA106994

PATIENT
  Age: 60 Year
  Sex: Male

DRUGS (3)
  1. CLEXANE [Suspect]
     Active Substance: ENOXAPARIN SODIUM
     Indication: ANTICOAGULANT THERAPY
     Route: 042
     Dates: start: 20160602, end: 20160602
  2. AGGRASTAT [Concomitant]
     Active Substance: TIROFIBAN HYDROCHLORIDE
     Indication: ANTICOAGULANT THERAPY
     Dosage: DOSE IS WEIGHT BASED
     Route: 041
     Dates: start: 20160602, end: 20160602
  3. AGGRASTAT [Concomitant]
     Active Substance: TIROFIBAN HYDROCHLORIDE
     Indication: ANTICOAGULANT THERAPY
     Dosage: DOSE IS WEIGHT BASED
     Route: 040
     Dates: start: 20160602, end: 20160602

REACTIONS (1)
  - Cardiac arrest [Fatal]

NARRATIVE: CASE EVENT DATE: 20160602
